FAERS Safety Report 25633954 (Version 1)
Quarter: 2025Q3

REPORT INFORMATION
  Report Type: Spontaneous
  Country: US (occurrence: None)
  Receive Date: 20250801
  Receipt Date: 20250801
  Transmission Date: 20251020
  Serious: Yes (Other)
  Sender: FDA-CTU
  Company Number: None

PATIENT
  Age: 28 Year
  Sex: Female

DRUGS (1)
  1. POWER STICK FOR HER POWDER FRESH [Suspect]
     Active Substance: ALUMINUM SESQUICHLOROHYDRATE
     Indication: Hyperhidrosis
     Route: 061

REACTIONS (1)
  - Chemical burn [None]

NARRATIVE: CASE EVENT DATE: 20250731
